FAERS Safety Report 10758134 (Version 1)
Quarter: 2015Q1

REPORT INFORMATION
  Report Type: Spontaneous
  Country: US (occurrence: None)
  Receive Date: 20150202
  Receipt Date: 20150202
  Transmission Date: 20150721
  Serious: Yes (Hospitalization)
  Sender: FDA-Public Use
  Company Number: None

PATIENT
  Age: 68 Year
  Sex: Female
  Weight: 122.3 kg

DRUGS (18)
  1. LANTUS [Suspect]
     Active Substance: INSULIN GLARGINE
     Indication: DIABETES MELLITUS
     Dosage: 80UNITS, QAM, SQ
     Route: 058
  2. ASA [Concomitant]
     Active Substance: ASPIRIN
  3. PRINIVIL [Concomitant]
     Active Substance: LISINOPRIL
  4. PLAVIX [Concomitant]
     Active Substance: CLOPIDOGREL BISULFATE
  5. NOVOLOG [Suspect]
     Active Substance: INSULIN ASPART
     Dosage: SSI, AC MEALS, SQ
     Route: 058
  6. FLONASE [Concomitant]
     Active Substance: FLUTICASONE PROPIONATE
  7. NTG [Concomitant]
     Active Substance: NITROGLYCERIN
  8. NOVOLOG [Suspect]
     Active Substance: INSULIN ASPART
     Indication: DIABETES MELLITUS
     Dosage: SSI, AC MEALS, SQ
     Route: 058
  9. VITAMIN D [Concomitant]
     Active Substance: CHOLECALCIFEROL
  10. ADVAIR HFA [Concomitant]
     Active Substance: FLUTICASONE PROPIONATE\SALMETEROL XINAFOATE
  11. PRILOSEC [Concomitant]
     Active Substance: OMEPRAZOLE MAGNESIUM
  12. LOPRESSOR [Concomitant]
     Active Substance: METOPROLOL TARTRATE
  13. FOLVITE [Concomitant]
     Active Substance: FOLIC ACID
  14. SILVADENE [Concomitant]
     Active Substance: SILVER SULFADIAZINE
  15. LANTUS [Suspect]
     Active Substance: INSULIN GLARGINE
     Dosage: 80UNITS, QAM, SQ
     Route: 058
  16. LASIX [Concomitant]
     Active Substance: FUROSEMIDE
  17. KENALOG [Concomitant]
     Active Substance: TRIAMCINOLONE ACETONIDE
  18. ZOCOR [Concomitant]
     Active Substance: SIMVASTATIN

REACTIONS (7)
  - Diabetes mellitus inadequate control [None]
  - Metastatic neoplasm [None]
  - Nausea [None]
  - Hypoglycaemia [None]
  - Vomiting [None]
  - Hypophagia [None]
  - Overdose [None]

NARRATIVE: CASE EVENT DATE: 20140902
